FAERS Safety Report 5848400-7 (Version None)
Quarter: 2008Q3

REPORT INFORMATION
  Report Type: 
  Country: None (occurrence: None)
  Receive Date: 20080818
  Receipt Date: 20080609
  Transmission Date: 20090109
  Serious: No
  Sender: FDA-Public Use
  Company Number: US-BAYER-200825256NA

PATIENT
  Age: 58 Year
  Sex: Male
  Weight: 91 kg

DRUGS (5)
  1. BETASERON [Suspect]
     Indication: RELAPSING-REMITTING MULTIPLE SCLEROSIS
     Dosage: TOTAL DAILY DOSE: 6 MIU
     Dates: start: 20070801, end: 20070901
  2. BETASERON [Suspect]
     Dosage: TOTAL DAILY DOSE: 8 MIU
     Dates: start: 20070901, end: 20070901
  3. ELMIRON [Concomitant]
  4. LEVOTHYROXINE SODIUM [Concomitant]
  5. XALATAN [Concomitant]

REACTIONS (3)
  - HYPOAESTHESIA [None]
  - MULTIPLE SCLEROSIS [None]
  - MUSCLE SPASMS [None]
